FAERS Safety Report 16064824 (Version 1)
Quarter: 2019Q1

REPORT INFORMATION
  Report Type: Spontaneous
  Country: US (occurrence: US)
  Receive Date: 20190312
  Receipt Date: 20190312
  Transmission Date: 20190418
  Serious: Yes (Hospitalization)
  Sender: FDA-Public Use
  Company Number: US-STASON PHARMACEUTICALS, INC.-2063911

PATIENT
  Age: 13 Year
  Sex: Female

DRUGS (1)
  1. MERCAPTOPURINE. [Suspect]
     Active Substance: MERCAPTOPURINE

REACTIONS (1)
  - Pyrexia [Recovered/Resolved]
